FAERS Safety Report 14555060 (Version 1)
Quarter: 2018Q1

REPORT INFORMATION
  Report Type: Spontaneous
  Country: US (occurrence: US)
  Receive Date: 20180220
  Receipt Date: 20180220
  Transmission Date: 20180509
  Serious: Yes (Hospitalization, Other)
  Sender: FDA-Public Use
  Company Number: US-GLAXOSMITHKLINE-US2018027592

PATIENT
  Age: 70 Year
  Sex: Female

DRUGS (2)
  1. INCRUSE ELLIPTA [Suspect]
     Active Substance: UMECLIDINIUM BROMIDE
     Indication: ASTHMA
     Dosage: 1 PUFF(S), QD
     Dates: start: 201707
  2. SPIRIVA [Suspect]
     Active Substance: TIOTROPIUM BROMIDE MONOHYDRATE
     Indication: PRODUCT USED FOR UNKNOWN INDICATION
     Dosage: UNK UNK, U

REACTIONS (6)
  - Rehabilitation therapy [Unknown]
  - Post-traumatic stress disorder [Unknown]
  - Lower limb fracture [Recovering/Resolving]
  - Fall [Recovering/Resolving]
  - Dyspnoea [Unknown]
  - Limb operation [Recovering/Resolving]

NARRATIVE: CASE EVENT DATE: 20170816
